FAERS Safety Report 8962270 (Version 1)
Quarter: 2012Q4

REPORT INFORMATION
  Report Type: 
  Country: NL (occurrence: NL)
  Receive Date: 20121212
  Receipt Date: 20121212
  Transmission Date: 20130627
  Serious: Yes (Hospitalization)
  Sender: FDA-Public Use
  Company Number: NL-PFIZER INC-2012309014

PATIENT
  Age: 36 Year
  Sex: Male
  Weight: 85 kg

DRUGS (4)
  1. GENOTROPIN [Suspect]
     Dosage: 0.7 mg, 1x/day,7 injections/week
     Route: 058
     Dates: start: 20040301
  2. ANDRIOL [Concomitant]
     Indication: LUTEINIZING HORMONE DEFICIENCY
     Dosage: UNK
     Dates: start: 20020321
  3. ANDRIOL [Concomitant]
     Indication: FOLLICLE-STIMULATING HORMONE DEFICIENCY
  4. ANDRIOL [Concomitant]
     Indication: TESTICULAR HYPOGONADISM

REACTIONS (1)
  - Musculoskeletal disorder [Unknown]
